FAERS Safety Report 25139021 (Version 5)
Quarter: 2025Q3

REPORT INFORMATION
  Report Type: Spontaneous
  Country: US (occurrence: US)
  Receive Date: 20250331
  Receipt Date: 20250916
  Transmission Date: 20251021
  Serious: No
  Sender: SANOFI AVENTIS
  Company Number: US-SA-2025SA090955

PATIENT
  Age: 11 Year
  Sex: Male

DRUGS (2)
  1. DUPIXENT [Suspect]
     Active Substance: DUPILUMAB
     Indication: Asthma
     Dosage: 200 MG, QOW
     Route: 058
     Dates: start: 202412
  2. XOLAIR [Concomitant]
     Active Substance: OMALIZUMAB

REACTIONS (6)
  - Epistaxis [Unknown]
  - Migraine [Unknown]
  - Headache [Unknown]
  - Asthma [Unknown]
  - Rash [Unknown]
  - Oral herpes [Recovered/Resolved]

NARRATIVE: CASE EVENT DATE: 20250101
